FAERS Safety Report 5250682-X (Version None)
Quarter: 2007Q1

REPORT INFORMATION
  Report Type: 
  Country: None (occurrence: None)
  Receive Date: 20070228
  Receipt Date: 20060616
  Transmission Date: 20070707
  Serious: No
  Sender: FDA-Public Use
  Company Number: US-GLAXOSMITHKLINE-A0609511A

PATIENT
  Age: 21 Year
  Sex: Female

DRUGS (2)
  1. LAMICTAL [Suspect]
     Indication: BIPOLAR DISORDER
     Dosage: 250MG PER DAY
     Route: 048
  2. PAXIL [Concomitant]

REACTIONS (5)
  - DIZZINESS [None]
  - FALL [None]
  - HYPERSOMNIA [None]
  - RASH [None]
  - SCAR [None]
